FAERS Safety Report 6914935-9 (Version None)
Quarter: 2010Q3

REPORT INFORMATION
  Report Type: 
  Country: None (occurrence: None)
  Receive Date: 20100809
  Receipt Date: 20100802
  Transmission Date: 20110219
  Serious: Yes (Other)
  Sender: FDA-Public Use
  Company Number: PHHY2010US47132

PATIENT
  Sex: Female
  Weight: 81.179 kg

DRUGS (1)
  1. ZOLEDRONATE T29581+SOLINF [Suspect]
     Indication: BREAST CANCER
     Dosage: 4 MG MONTHLY
     Route: 042
     Dates: start: 20080812

REACTIONS (2)
  - OVARIAN CANCER [None]
  - TOOTH DISCOLOURATION [None]
